FAERS Safety Report 7328498-X (Version None)
Quarter: 2011Q1

REPORT INFORMATION
  Report Type: 
  Country: None (occurrence: None)
  Receive Date: 20110303
  Receipt Date: 20110222
  Transmission Date: 20110831
  Serious: Yes (Other)
  Sender: FDA-Public Use
  Company Number: JP-PERRIGO-11JP001517

PATIENT
  Age: 37 Year
  Sex: Male

DRUGS (13)
  1. SERRAPEPTASE [Concomitant]
     Indication: OROPHARYNGEAL PAIN
     Dosage: UNK
     Route: 065
  2. LEVOMEPROMAZINE [Concomitant]
     Indication: DEPRESSION
     Dosage: UNK
     Route: 065
  3. BIPERIDEN HYDROCHLORIDE TAB [Concomitant]
     Indication: DEPRESSION
     Dosage: UNK
     Route: 065
  4. LOXOPROFEN SODIUM [Concomitant]
     Indication: OROPHARYNGEAL PAIN
     Dosage: UNK
     Route: 065
  5. RISPERDONE [Concomitant]
     Indication: DEPRESSION
     Dosage: UNK
     Route: 065
  6. MIGRENIN [Concomitant]
     Indication: OROPHARYNGEAL PAIN
     Dosage: UNK
     Route: 065
  7. DICLOFENAC [Concomitant]
     Indication: OROPHARYNGEAL PAIN
     Dosage: UNK
     Route: 065
  8. DIMEMORFAN PHOSPHATE [Concomitant]
     Indication: OROPHARYNGEAL PAIN
     Dosage: UNK
     Route: 065
  9. CARBAMAZEPINE [Suspect]
     Indication: DEPRESSION
     Dosage: UNK
     Route: 065
  10. ACETAMINOPHEN [Suspect]
     Indication: OROPHARYNGEAL PAIN
     Dosage: UNK
     Route: 048
  11. CIPROFLOXACIN HYDROCHLORIDE [Concomitant]
     Indication: OROPHARYNGEAL PAIN
     Dosage: UNK
     Route: 065
  12. FLUNITRAZEPAM [Concomitant]
     Indication: DEPRESSION
     Dosage: UNK
     Route: 065
  13. QUETIAPINE FUMARATE [Concomitant]
     Indication: DEPRESSION
     Dosage: UNK
     Route: 065

REACTIONS (10)
  - ORAL DISORDER [None]
  - ROSEOLOVIRUS TEST POSITIVE [None]
  - LEUKOCYTOSIS [None]
  - LIVER DISORDER [None]
  - TOXIC EPIDERMAL NECROLYSIS [None]
  - GENERALISED ERYTHEMA [None]
  - SKIN LESION [None]
  - RASH PUSTULAR [None]
  - C-REACTIVE PROTEIN INCREASED [None]
  - GENITAL LESION [None]
